APPROVED DRUG PRODUCT: FLUOTHANE
Active Ingredient: HALOTHANE
Strength: 99.99% **Federal Register determination that product was not discontinued or withdrawn for safety or effectiveness reasons**
Dosage Form/Route: LIQUID;INHALATION
Application: N011338 | Product #001
Applicant: WYETH AYERST LABORATORIES
Approved: Approved Prior to Jan 1, 1982 | RLD: No | RS: No | Type: DISCN